FAERS Safety Report 10583539 (Version 1)
Quarter: 2014Q4

REPORT INFORMATION
  Report Type: Spontaneous
  Country: FI (occurrence: None)
  Receive Date: 20141112
  Receipt Date: 20141112
  Transmission Date: 20150529
  Serious: Yes (Hospitalization)
  Sender: FDA-Public Use
  Company Number: 2014MPI01310

PATIENT
  Age: 25 Year
  Sex: Male

DRUGS (4)
  1. SERETIDE (FLUITASONE PROPIONATE, SALMETEROL XINAFOATE) [Concomitant]
  2. ADCETRIS [Suspect]
     Active Substance: BRENTUXIMAB VEDOTIN
     Indication: HODGKIN^S DISEASE
     Dosage: UNK, UNKNOWN
     Dates: start: 20140915, end: 20140915
  3. APURIN (ALLOPURINOL) [Concomitant]
  4. MONTELUKAST [Concomitant]
     Active Substance: MONTELUKAST SODIUM

REACTIONS (1)
  - Pneumocystis jirovecii infection [None]
